FAERS Safety Report 19587375 (Version 1)
Quarter: 2021Q3

REPORT INFORMATION
  Report Type: Spontaneous
  Country: US (occurrence: US)
  Receive Date: 20210720
  Receipt Date: 20210720
  Transmission Date: 20211014
  Serious: No
  Sender: FDA-Public Use
  Company Number: None

PATIENT
  Age: 58 Year
  Sex: Male

DRUGS (1)
  1. ARIKAYCE [Suspect]
     Active Substance: AMIKACIN
     Indication: LUNG DISORDER

REACTIONS (3)
  - Cough [None]
  - Asthenia [None]
  - Feeling abnormal [None]

NARRATIVE: CASE EVENT DATE: 20210720
